FAERS Safety Report 17599759 (Version 1)
Quarter: 2020Q1

REPORT INFORMATION
  Report Type: Spontaneous
  Country: DE (occurrence: DE)
  Receive Date: 20200330
  Receipt Date: 20200330
  Transmission Date: 20200409
  Serious: Yes (Other)
  Sender: FDA-Public Use
  Company Number: NVSC2020DE086829

PATIENT
  Sex: Male

DRUGS (1)
  1. CLINDAMYCIN - 1 A PHARMA 600 MG FILMTABLETTEN [Suspect]
     Active Substance: CLINDAMYCIN
     Indication: GINGIVITIS
     Dosage: 600 MG, UNKNOWN
     Route: 065

REACTIONS (2)
  - Pancreatitis [Unknown]
  - Faeces soft [Unknown]
